FAERS Safety Report 13017121 (Version 1)
Quarter: 2016Q4

REPORT INFORMATION
  Report Type: Spontaneous
  Country: US (occurrence: US)
  Receive Date: 20161208
  Receipt Date: 20161208
  Transmission Date: 20170207
  Serious: Yes (Hospitalization)
  Sender: FDA-Public Use
  Company Number: None

PATIENT
  Age: 63 Year
  Sex: Female

DRUGS (6)
  1. LUMIGAN [Concomitant]
     Active Substance: BIMATOPROST
  2. FASLODEX [Concomitant]
     Active Substance: FULVESTRANT
  3. NITRO FUR MAC [Concomitant]
  4. LETROZOLE 2.5MG TAB TEVA [Suspect]
     Active Substance: LETROZOLE
     Indication: BREAST CANCER FEMALE
     Route: 048
     Dates: end: 20161130
  5. IBRANCE [Suspect]
     Active Substance: PALBOCICLIB
     Indication: BREAST CANCER FEMALE
     Route: 048
     Dates: start: 201610
  6. ESTACE [Concomitant]

REACTIONS (4)
  - Systemic infection [None]
  - Device related infection [None]
  - Pneumonia [None]
  - Wound [None]

NARRATIVE: CASE EVENT DATE: 201611
